FAERS Safety Report 9917653 (Version 1)
Quarter: 2014Q1

REPORT INFORMATION
  Report Type: Spontaneous
  Country: US (occurrence: US)
  Receive Date: 20140221
  Receipt Date: 20140221
  Transmission Date: 20141002
  Serious: No
  Sender: FDA-Public Use
  Company Number: US-ENDO PHARMACEUTICALS INC.-PREV20130009

PATIENT
  Sex: Female

DRUGS (3)
  1. PREVIFEM [Suspect]
     Indication: PRODUCT USED FOR UNKNOWN INDICATION
     Dosage: UNKNOWN
     Route: 048
     Dates: start: 2013, end: 201303
  2. SPRINTEC [Suspect]
     Indication: PRODUCT USED FOR UNKNOWN INDICATION
     Dosage: UNKNOWN
     Route: 065
     Dates: end: 2013
  3. SPRINTEC [Suspect]
     Dosage: UNKNOWN
     Route: 065
     Dates: start: 201303

REACTIONS (1)
  - Metrorrhagia [Unknown]
